FAERS Safety Report 16422232 (Version 3)
Quarter: 2019Q3

REPORT INFORMATION
  Report Type: Spontaneous
  Country: US (occurrence: US)
  Receive Date: 20190612
  Receipt Date: 20190719
  Transmission Date: 20191004
  Serious: Yes (Other)
  Sender: FDA-Public Use
  Company Number: US-ASTRAZENECA-2018SF15091

PATIENT
  Age: 905 Month
  Sex: Female
  Weight: 89.8 kg

DRUGS (34)
  1. LIPITOR [Concomitant]
     Active Substance: ATORVASTATIN CALCIUM
  2. LISINOPRIL. [Concomitant]
     Active Substance: LISINOPRIL
     Indication: HYPERTENSION
  3. DICLOFENAC [Concomitant]
     Active Substance: DICLOFENAC
  4. NIZORAL [Concomitant]
     Active Substance: KETOCONAZOLE
  5. AMOXICILLIN. [Concomitant]
     Active Substance: AMOXICILLIN
     Indication: ANTIBIOTIC THERAPY
     Dates: start: 20050601, end: 20100722
  6. BEXTRA [Concomitant]
     Active Substance: VALDECOXIB
     Indication: ARTHRITIS
  7. CRESTOR [Concomitant]
     Active Substance: ROSUVASTATIN CALCIUM
     Indication: BLOOD CHOLESTEROL
  8. DETROL [Concomitant]
     Active Substance: TOLTERODINE TARTRATE
  9. ZITHROMAX [Concomitant]
     Active Substance: AZITHROMYCIN DIHYDRATE
     Indication: ANTIBIOTIC THERAPY
  10. NEXIUM [Suspect]
     Active Substance: ESOMEPRAZOLE MAGNESIUM
     Indication: GASTROOESOPHAGEAL REFLUX DISEASE
     Route: 048
     Dates: start: 20060719, end: 20141215
  11. NEXIUM [Suspect]
     Active Substance: ESOMEPRAZOLE MAGNESIUM
     Indication: GASTROOESOPHAGEAL REFLUX DISEASE
     Route: 065
     Dates: start: 20070619, end: 20150526
  12. ACIPHEX [Suspect]
     Active Substance: RABEPRAZOLE SODIUM
     Indication: GASTROOESOPHAGEAL REFLUX DISEASE
     Route: 065
     Dates: start: 20050215, end: 20060512
  13. METOPROLOL. [Concomitant]
     Active Substance: METOPROLOL
  14. DOCUSATE [Concomitant]
     Active Substance: DOCUSATE
  15. PREVACID 24 HR [Suspect]
     Active Substance: LANSOPRAZOLE
     Route: 065
     Dates: start: 200607, end: 201412
  16. ASPIRIN. [Concomitant]
     Active Substance: ASPIRIN
  17. FAMOTIDINE. [Concomitant]
     Active Substance: FAMOTIDINE
  18. METFORMIN [Concomitant]
     Active Substance: METFORMIN HYDROCHLORIDE
  19. BYETTA [Concomitant]
     Active Substance: EXENATIDE
  20. NEXIUM [Suspect]
     Active Substance: ESOMEPRAZOLE MAGNESIUM
     Indication: GASTROOESOPHAGEAL REFLUX DISEASE
     Route: 048
     Dates: start: 20060719, end: 20141215
  21. TOPAMAX [Concomitant]
     Active Substance: TOPIRAMATE
  22. LORAZEPAM. [Concomitant]
     Active Substance: LORAZEPAM
  23. LOSARTAN. [Concomitant]
     Active Substance: LOSARTAN
  24. ZETIA [Concomitant]
     Active Substance: EZETIMIBE
  25. KETOROLAC [Concomitant]
     Active Substance: KETOROLAC TROMETHAMINE
  26. PLAVIX [Concomitant]
     Active Substance: CLOPIDOGREL BISULFATE
  27. METFORMIN [Concomitant]
     Active Substance: METFORMIN HYDROCHLORIDE
     Indication: DIABETES MELLITUS
  28. PRIMIDONE. [Concomitant]
     Active Substance: PRIMIDONE
  29. CYMBALTA [Concomitant]
     Active Substance: DULOXETINE HYDROCHLORIDE
  30. AMLODIPINE [Concomitant]
     Active Substance: AMLODIPINE BESYLATE
  31. NEXIUM [Suspect]
     Active Substance: ESOMEPRAZOLE MAGNESIUM
     Indication: GASTROOESOPHAGEAL REFLUX DISEASE
     Route: 048
     Dates: start: 200607, end: 201412
  32. PRILOSEC OTC [Suspect]
     Active Substance: OMEPRAZOLE MAGNESIUM
     Route: 048
     Dates: start: 200607, end: 201412
  33. GLUCOVANCE [Concomitant]
     Active Substance: GLYBURIDE\METFORMIN HYDROCHLORIDE
  34. ALPRAZOLAM. [Concomitant]
     Active Substance: ALPRAZOLAM

REACTIONS (8)
  - End stage renal disease [Unknown]
  - Renal injury [Unknown]
  - Chronic kidney disease [Not Recovered/Not Resolved]
  - Dyspepsia [Unknown]
  - Acute kidney injury [Not Recovered/Not Resolved]
  - Renal failure [Unknown]
  - Tubulointerstitial nephritis [Unknown]
  - Nephrogenic anaemia [Unknown]

NARRATIVE: CASE EVENT DATE: 201204
